FAERS Safety Report 11103928 (Version 2)
Quarter: 2023Q1

REPORT INFORMATION
  Report Type: Report from Study
  Country: GB (occurrence: GB)
  Receive Date: 20150511
  Receipt Date: 20230301
  Transmission Date: 20230418
  Serious: Yes (Death, Hospitalization)
  Sender: FDA-Public Use
  Company Number: GB-GLAXOSMITHKLINE-GB2015GSK062619

PATIENT

DRUGS (1)
  1. ZANAMIVIR [Suspect]
     Active Substance: ZANAMIVIR
     Indication: Influenza
     Dosage: UNK
     Route: 042
     Dates: start: 20091030, end: 20091114

REACTIONS (2)
  - Influenza [Fatal]
  - Exposure during pregnancy [Unknown]
